FAERS Safety Report 7747008-6 (Version None)
Quarter: 2011Q3

REPORT INFORMATION
  Report Type: 
  Country: None (occurrence: None)
  Receive Date: 20110913
  Receipt Date: 20110906
  Transmission Date: 20111222
  Serious: Yes (Other)
  Sender: FDA-Public Use
  Company Number: US-TEVA-299360USA

PATIENT
  Age: 54 Year
  Sex: Female

DRUGS (5)
  1. METOPROLOL SUCCINATE [Concomitant]
  2. BUPROPION HCL [Concomitant]
  3. ESTRADIOL AND NORETHINDRONE ACETATE [Suspect]
  4. ERGOCALCIFEROL [Concomitant]
  5. DIAZEPAM [Concomitant]

REACTIONS (6)
  - APPETITE DISORDER [None]
  - NERVOUSNESS [None]
  - DEPRESSION [None]
  - SUICIDAL IDEATION [None]
  - NIGHTMARE [None]
  - WEIGHT INCREASED [None]
